FAERS Safety Report 4370065-4 (Version None)
Quarter: 2004Q2

REPORT INFORMATION
  Report Type: 
  Country: None (occurrence: None)
  Receive Date: 20040526
  Receipt Date: 20030716
  Transmission Date: 20050107
  Serious: Yes (Hospitalization)
  Sender: FDA-Public Use
  Company Number: SUS1-2003-00174

PATIENT
  Age: 98 Year
  Sex: Female

DRUGS (5)
  1. AGRYLIN (ANAGRELIDE  HYDROCHLORIDE) CAPSULE [Suspect]
     Indication: PLATELET COUNT INCREASED
     Dosage: 0.5 MG, 1X/DAY:QD, ORAL
     Route: 048
  2. LASIX [Concomitant]
  3. ASPIRIN [Concomitant]
  4. POTASSIUM (POTASSIUM) [Concomitant]
  5. IRON (IRON) [Concomitant]

REACTIONS (1)
  - HAEMORRHAGE [None]
